FAERS Safety Report 23957305 (Version 1)
Quarter: 2024Q2

REPORT INFORMATION
  Report Type: Spontaneous
  Country: US (occurrence: US)
  Receive Date: 20240610
  Receipt Date: 20240610
  Transmission Date: 20240716
  Serious: No
  Sender: FDA-Public Use
  Company Number: US-INSUD PHARMA-2406US04526

PATIENT

DRUGS (1)
  1. PROGESTERONE [Suspect]
     Active Substance: PROGESTERONE
     Indication: Hormone replacement therapy
     Dosage: UNK
     Route: 048
     Dates: end: 20240524

REACTIONS (3)
  - Nausea [Recovered/Resolved]
  - Product odour abnormal [Unknown]
  - Product prescribing issue [Unknown]
